FAERS Safety Report 10086717 (Version 1)
Quarter: 2014Q2

REPORT INFORMATION
  Report Type: Report from Study
  Country: NL (occurrence: NL)
  Receive Date: 20140418
  Receipt Date: 20140418
  Transmission Date: 20141212
  Serious: Yes (Hospitalization)
  Sender: FDA-Public Use
  Company Number: NL-BRISTOL-MYERS SQUIBB COMPANY-20614558

PATIENT
  Age: 72 Year
  Sex: Male

DRUGS (17)
  1. BLINDED: IPILIMUMAB [Suspect]
     Indication: NON-SMALL CELL LUNG CANCER RECURRENT
     Route: 042
     Dates: start: 20140312
  2. CARBOPLATIN [Suspect]
     Indication: NON-SMALL CELL LUNG CANCER RECURRENT
     Route: 042
     Dates: start: 20140129, end: 20140402
  3. PACLITAXEL [Suspect]
     Indication: NON-SMALL CELL LUNG CANCER RECURRENT
     Route: 042
     Dates: start: 20140129, end: 20140402
  4. BLINDED: PLACEBO [Suspect]
     Indication: NON-SMALL CELL LUNG CANCER RECURRENT
  5. LANOXIN [Concomitant]
     Dates: start: 2012
  6. METOPROLOL [Concomitant]
     Dates: start: 2012
  7. MINOCYCLINE [Concomitant]
     Dates: start: 201310
  8. FORADIL [Concomitant]
     Dates: start: 199801
  9. SPIRIVA [Concomitant]
     Dates: start: 20090529
  10. PANTOPRAZOLE [Concomitant]
  11. ACENOCOUMAROL [Concomitant]
  12. SIMVASTATINE [Concomitant]
  13. MIRTAZAPINE [Concomitant]
  14. METRONIDAZOLE [Concomitant]
     Dates: start: 2013
  15. MOVICOLON [Concomitant]
  16. DICLOFENAC [Concomitant]
     Dates: start: 20140217
  17. PARACETAMOL [Concomitant]
     Dates: start: 20140217

REACTIONS (1)
  - Diarrhoea [Unknown]
